FAERS Safety Report 11032478 (Version 3)
Quarter: 2015Q3

REPORT INFORMATION
  Report Type: Spontaneous
  Country: US (occurrence: US)
  Receive Date: 20150415
  Receipt Date: 20150721
  Transmission Date: 20151125
  Serious: Yes (Life-Threatening, Hospitalization, Other)
  Sender: FDA-Public Use
  Company Number: US-JNJFOC-20150212794

PATIENT
  Age: 76 Year
  Sex: Male

DRUGS (19)
  1. POLYETHYLENE GLYCOL [Concomitant]
     Active Substance: POLYETHYLENE GLYCOLS
     Dates: start: 2005
  2. XARELTO [Suspect]
     Active Substance: RIVAROXABAN
     Indication: ATRIAL FIBRILLATION
     Route: 048
     Dates: start: 20120925, end: 201409
  3. COUMADIN [Concomitant]
     Active Substance: WARFARIN SODIUM
     Indication: STENT PLACEMENT
     Dates: start: 2006, end: 2012
  4. FLUTICASONE [Concomitant]
     Active Substance: FLUTICASONE\FLUTICASONE PROPIONATE
     Dates: start: 2014, end: 2014
  5. METOPROLOL [Concomitant]
     Active Substance: METOPROLOL
     Dates: start: 2005
  6. SINGULAIR [Concomitant]
     Active Substance: MONTELUKAST SODIUM
     Dates: start: 2005
  7. LIVALO [Concomitant]
     Active Substance: PITAVASTATIN CALCIUM
     Dates: start: 2014, end: 2014
  8. VALSARTAN. [Concomitant]
     Active Substance: VALSARTAN
  9. SPIRIVA [Concomitant]
     Active Substance: TIOTROPIUM BROMIDE MONOHYDRATE
     Dates: start: 2009
  10. ASPIRIN. [Suspect]
     Active Substance: ASPIRIN
     Indication: ATRIAL FIBRILLATION
  11. TRILIPIX [Concomitant]
     Active Substance: FENOFIBRIC ACID
     Dates: start: 2012, end: 2014
  12. LASIX [Concomitant]
     Active Substance: FUROSEMIDE
  13. XARELTO [Suspect]
     Active Substance: RIVAROXABAN
     Indication: CEREBROVASCULAR ACCIDENT PROPHYLAXIS
     Route: 048
     Dates: start: 20120925, end: 201409
  14. SALBUTAMOL SULPHATE [Concomitant]
     Active Substance: ALBUTEROL SULFATE
     Dates: start: 2005
  15. HYDROCODONE [Concomitant]
     Active Substance: HYDROCODONE
  16. DIOVAN [Concomitant]
     Active Substance: VALSARTAN
     Dates: start: 2005
  17. XARELTO [Suspect]
     Active Substance: RIVAROXABAN
     Indication: EMBOLISM
     Route: 048
     Dates: start: 20120925, end: 201409
  18. ADVAIR HFA [Concomitant]
     Active Substance: FLUTICASONE PROPIONATE\SALMETEROL XINAFOATE
  19. DICLOFENAC [Concomitant]
     Active Substance: DICLOFENAC
     Dates: start: 2012

REACTIONS (2)
  - Iron deficiency anaemia [Recovered/Resolved]
  - Gastrointestinal haemorrhage [Unknown]

NARRATIVE: CASE EVENT DATE: 20140214
